FAERS Safety Report 24607744 (Version 2)
Quarter: 2025Q3

REPORT INFORMATION
  Report Type: Report from Study
  Country: US (occurrence: US)
  Receive Date: 20241112
  Receipt Date: 20250809
  Transmission Date: 20251020
  Serious: Yes (Other)
  Sender: ALEXION PHARMACEUTICALS
  Company Number: US-AstraZeneca-CH-00740836A

PATIENT
  Sex: Female

DRUGS (1)
  1. DAPAGLIFLOZIN [Suspect]
     Active Substance: DAPAGLIFLOZIN

REACTIONS (5)
  - Cardiac failure [Unknown]
  - Renal failure [Unknown]
  - Respiratory failure [Unknown]
  - Diabetes mellitus [Unknown]
  - Product use issue [Unknown]
